FAERS Safety Report 5131439-7 (Version None)
Quarter: 2006Q4

REPORT INFORMATION
  Report Type: 
  Country: None (occurrence: None)
  Receive Date: 20061020
  Receipt Date: 20060424
  Transmission Date: 20070319
  Serious: Yes (Other)
  Sender: FDA-Public Use
  Company Number: GB-BRISTOL-MYERS SQUIBB COMPANY-13359229

PATIENT
  Age: 12 Year
  Sex: Female
  Weight: 81 kg

DRUGS (2)
  1. CYCLOPHOSPHAMIDE [Suspect]
     Indication: RHABDOMYOSARCOMA
     Route: 042
     Dates: start: 20041108, end: 20050511
  2. VINCRISTINE [Suspect]
     Indication: RHABDOMYOSARCOMA
     Route: 042
     Dates: start: 20041108

REACTIONS (3)
  - BLOOD PRESSURE DECREASED [None]
  - EYE PAIN [None]
  - PHOTOPHOBIA [None]
